FAERS Safety Report 8402832-1 (Version None)
Quarter: 2012Q2

REPORT INFORMATION
  Report Type: 
  Country: None (occurrence: None)
  Receive Date: 20120323
  Receipt Date: 20110812
  Transmission Date: 20120825
  Serious: Yes (Hospitalization)
  Sender: FDA-Public Use
  Company Number: 163-21880-11040931

PATIENT
  Age: 52 Year
  Sex: Female

DRUGS (12)
  1. VELCADE [Suspect]
     Indication: PRODUCT USED FOR UNKNOWN INDICATION
  2. MAGNESIUM (MAGNESIUM) [Concomitant]
  3. DEXAMETHASONE [Concomitant]
  4. REVLIMID [Suspect]
     Indication: MULTIPLE MYELOMA
     Dosage: 25 MG, DAILY FOR 14 DAYS, PO
     Route: 048
     Dates: start: 20110401, end: 20110718
  5. COMPAZINE [Concomitant]
  6. PENTAMIDINE (PENTAMIDINE) [Concomitant]
  7. LOVENOX [Concomitant]
  8. POTASSIUM CHLORIDE [Concomitant]
  9. MS CONTIN [Concomitant]
  10. PANTOPRAZOLE [Concomitant]
  11. ACYCLOVIR [Concomitant]
  12. NYSTATIN [Concomitant]

REACTIONS (1)
  - CLOSTRIDIUM DIFFICILE COLITIS [None]
